FAERS Safety Report 9475444 (Version 2)
Quarter: 2013Q3

REPORT INFORMATION
  Report Type: Report from Study
  Country: MW (occurrence: MW)
  Receive Date: 20130826
  Receipt Date: 20130826
  Transmission Date: 20140515
  Serious: Yes (Hospitalization)
  Sender: FDA-Public Use
  Company Number: MW-009507513-1105USA02670

PATIENT
  Age: 33 Year
  Sex: Female

DRUGS (5)
  1. RALTEGRAVIR POTASSIUM [Suspect]
     Indication: HIV INFECTION
     Dates: start: 20110325
  2. ALUVIA [Suspect]
     Dates: start: 20110325
  3. GLIBENCLAMID [Suspect]
     Dates: start: 20110322, end: 20110513
  4. SULFAMETHOXAZOLE (+) TRIMETHOPRIM [Concomitant]
     Dates: start: 20061121
  5. INSULIN [Concomitant]
     Dates: start: 20110514

REACTIONS (5)
  - Diabetic ketoacidosis [Recovering/Resolving]
  - Pancreatitis [Recovering/Resolving]
  - Plasmodium falciparum infection [Recovered/Resolved]
  - Anaemia [Recovered/Resolved]
  - Staphylococcal sepsis [Recovered/Resolved]
